FAERS Safety Report 7942098-X (Version None)
Quarter: 2011Q4

REPORT INFORMATION
  Report Type: 
  Country: None (occurrence: None)
  Receive Date: 20111122
  Receipt Date: 20111122
  Transmission Date: 20120403
  Serious: Yes (Other)
  Sender: FDA-Public Use
  Company Number: None

PATIENT
  Sex: Female
  Weight: 79.3795 kg

DRUGS (1)
  1. LIVALO [Suspect]
     Indication: BLOOD CHOLESTEROL
     Dosage: 2 MG.
     Dates: start: 20110822, end: 20110826

REACTIONS (7)
  - BACK PAIN [None]
  - INFLUENZA LIKE ILLNESS [None]
  - PAIN [None]
  - TOOTHACHE [None]
  - CONSTIPATION [None]
  - HEADACHE [None]
  - MYALGIA [None]
